FAERS Safety Report 8505957-5 (Version None)
Quarter: 2012Q3

REPORT INFORMATION
  Report Type: 
  Country: None (occurrence: None)
  Receive Date: 20120712
  Receipt Date: 20120709
  Transmission Date: 20120928
  Serious: Yes (Other)
  Sender: FDA-Public Use
  Company Number: US-GLAXOSMITHKLINE-A0979111A

PATIENT
  Age: 81 Year
  Sex: Male

DRUGS (6)
  1. AVODART [Suspect]
     Indication: BENIGN PROSTATIC HYPERPLASIA
     Dosage: 1CAP AT NIGHT
     Route: 048
     Dates: start: 20091001
  2. WARFARIN SODIUM [Concomitant]
  3. METOPROLOL TARTRATE [Concomitant]
  4. DIGOXIN [Concomitant]
  5. CARDIZEM [Concomitant]
  6. IRON [Concomitant]

REACTIONS (4)
  - ANAEMIA [None]
  - BREAST INDURATION [None]
  - BREAST ENLARGEMENT [None]
  - BREAST TENDERNESS [None]
